FAERS Safety Report 5633097-1 (Version None)
Quarter: 2008Q1

REPORT INFORMATION
  Report Type: 
  Country: None (occurrence: None)
  Receive Date: 20080215
  Receipt Date: 20080204
  Transmission Date: 20080703
  Serious: Yes (Hospitalization, Other)
  Sender: FDA-Public Use
  Company Number: 2008S1001810

PATIENT
  Age: 78 Year
  Sex: Female

DRUGS (1)
  1. ACYCLOVIR [Suspect]
     Indication: ENCEPHALITIS HERPES

REACTIONS (4)
  - CONFUSIONAL STATE [None]
  - ENCEPHALOPATHY [None]
  - HALLUCINATION, VISUAL [None]
  - RENAL FAILURE ACUTE [None]
